FAERS Safety Report 25462124 (Version 1)
Quarter: 2025Q2

REPORT INFORMATION
  Report Type: Spontaneous
  Country: US (occurrence: None)
  Receive Date: 20250619
  Receipt Date: 20250619
  Transmission Date: 20250717
  Serious: Yes (Disabling)
  Sender: FDA-CTU
  Company Number: None

PATIENT
  Age: 73 Year
  Sex: Male
  Weight: 87.75 kg

DRUGS (9)
  1. LEVOFLOXACIN [Suspect]
     Active Substance: LEVOFLOXACIN
     Indication: Sinusitis
     Dosage: OTHER QUANTITY : 20 TABLET(S);?FREQUENCY : TWICE A DAY;?
     Route: 048
     Dates: start: 20250304, end: 20250305
  2. CAPTOPRIL [Concomitant]
     Active Substance: CAPTOPRIL
  3. ATENOLOL [Concomitant]
     Active Substance: ATENOLOL
  4. Triamterine HTZ [Concomitant]
  5. AMLODIPINE [Concomitant]
     Active Substance: AMLODIPINE BESYLATE
  6. ASCORBIC ACID [Concomitant]
     Active Substance: ASCORBIC ACID
  7. VITAMIN D3 [Concomitant]
     Active Substance: CHOLECALCIFEROL
  8. B12 [Concomitant]
  9. TOCOPHEROL [Concomitant]
     Active Substance: TOCOPHEROL

REACTIONS (2)
  - Gait inability [None]
  - Joint swelling [None]

NARRATIVE: CASE EVENT DATE: 20250609
